FAERS Safety Report 9385882 (Version 2)
Quarter: 2013Q3

REPORT INFORMATION
  Report Type: Spontaneous
  Country: CA (occurrence: CA)
  Receive Date: 20130705
  Receipt Date: 20130717
  Transmission Date: 20140515
  Serious: Yes (Hospitalization)
  Sender: FDA-Public Use
  Company Number: CA-009507513-1307CAN002906

PATIENT
  Sex: Male
  Weight: 62 kg

DRUGS (3)
  1. VICTRELIS TRIPLE [Suspect]
     Indication: HEPATITIS C
     Dosage: 1600 MG, TID
     Route: 048
     Dates: start: 20130222, end: 20130416
  2. VICTRELIS TRIPLE [Suspect]
     Dosage: 800 MG, QD
     Route: 048
     Dates: start: 20130222, end: 20130416
  3. VICTRELIS TRIPLE [Suspect]
     Dosage: 100 MICROGRAM, QW
     Dates: start: 20130222, end: 20130416

REACTIONS (3)
  - Pulmonary cavitation [Unknown]
  - Tooth abscess [Unknown]
  - Inappropriate schedule of drug administration [Unknown]
